FAERS Safety Report 18163228 (Version 2)
Quarter: 2020Q4

REPORT INFORMATION
  Report Type: Report from Study
  Country: AU (occurrence: AU)
  Receive Date: 20200818
  Receipt Date: 20201020
  Transmission Date: 20210113
  Serious: Yes (Life-Threatening, Hospitalization, Other)
  Sender: FDA-Public Use
  Company Number: AU-SA-2020SA092819

PATIENT

DRUGS (8)
  1. SPIRIVA RESPIMAT [Concomitant]
     Active Substance: TIOTROPIUM BROMIDE
     Dosage: 2.5 UG, QD
     Route: 055
     Dates: start: 2018
  2. AMANTADINE. [Concomitant]
     Active Substance: AMANTADINE HYDROCHLORIDE
     Indication: MULTIPLE SCLEROSIS
     Dosage: 100 MG, QD
     Route: 048
     Dates: start: 2013
  3. HIPREX [CHLORTALIDONE] [Concomitant]
     Indication: NEUROGENIC BLADDER
     Dosage: 1 G, BID
     Route: 048
     Dates: start: 2013
  4. OXYBUTYNIN [OXYBUTYNIN HYDROCHLORIDE] [Concomitant]
     Indication: NEUROGENIC BLADDER
     Dosage: 3.9 MG; ONCE EVERY 3 DAYS; PATCH
     Route: 065
     Dates: start: 2013
  5. TOPIRAMATE. [Concomitant]
     Active Substance: TOPIRAMATE
     Indication: MULTIPLE SCLEROSIS
     Dosage: 100 MG, QD
     Route: 048
     Dates: start: 2014
  6. ALEMTUZUMAB [Suspect]
     Active Substance: ALEMTUZUMAB
     Dosage: 3 DF
     Route: 042
     Dates: start: 2016, end: 2016
  7. ALEMTUZUMAB [Suspect]
     Active Substance: ALEMTUZUMAB
     Indication: MULTIPLE SCLEROSIS
     Dosage: 5 DF
     Route: 042
     Dates: start: 20151109, end: 2015
  8. SERETIDE [Concomitant]
     Active Substance: FLUTICASONE PROPIONATE\SALMETEROL XINAFOATE
     Indication: ASTHMA
     Dosage: 250/25
     Route: 055
     Dates: start: 2020

REACTIONS (7)
  - Lymphocyte count abnormal [Unknown]
  - Atrial fibrillation [Not Recovered/Not Resolved]
  - Immune thrombocytopenia [Unknown]
  - Platelet count abnormal [Recovered/Resolved]
  - Blood blister [Recovered/Resolved]
  - Increased tendency to bruise [Recovered/Resolved]
  - Basedow^s disease [Not Recovered/Not Resolved]

NARRATIVE: CASE EVENT DATE: 20170302
